FAERS Safety Report 7325097-0 (Version None)
Quarter: 2011Q1

REPORT INFORMATION
  Report Type: 
  Country: None (occurrence: None)
  Receive Date: 20110302
  Receipt Date: 20110222
  Transmission Date: 20110831
  Serious: Yes (Hospitalization)
  Sender: FDA-Public Use
  Company Number: US-BIOGENIDEC-2011BI006897

PATIENT
  Sex: Female

DRUGS (1)
  1. AVONEX [Suspect]
     Indication: MULTIPLE SCLEROSIS
     Route: 030
     Dates: start: 19980401

REACTIONS (5)
  - PERONEAL NERVE PALSY [None]
  - HAND FRACTURE [None]
  - LIGAMENT RUPTURE [None]
  - GASTRIC BANDING [None]
  - WRIST FRACTURE [None]
